FAERS Safety Report 19057444 (Version 2)
Quarter: 2021Q3

REPORT INFORMATION
  Report Type: Report from Study
  Country: NO (occurrence: NO)
  Receive Date: 20210324
  Receipt Date: 20210702
  Transmission Date: 20211014
  Serious: Yes (Hospitalization)
  Sender: FDA-Public Use
  Company Number: NO-TAKEDA-NO201738265

PATIENT
  Age: 34 Year
  Sex: Female
  Weight: 54 kg

DRUGS (13)
  1. TEDUGLUTIDE [Suspect]
     Active Substance: TEDUGLUTIDE
     Dosage: 0.0500 MILLIGRAM/KILOGRAM (TOTAL DAILY DOSE 2.800 MG), 7 DOSES/WEEK
     Route: 065
     Dates: start: 20150609
  2. TEDUGLUTIDE [Suspect]
     Active Substance: TEDUGLUTIDE
     Indication: SHORT-BOWEL SYNDROME
     Dosage: UNK
     Route: 058
     Dates: start: 20150608
  3. TEDUGLUTIDE [Suspect]
     Active Substance: TEDUGLUTIDE
     Indication: SHORT-BOWEL SYNDROME
     Dosage: UNK
     Route: 058
     Dates: start: 20150608
  4. LOPERAMIDE [Concomitant]
     Active Substance: LOPERAMIDE
     Indication: SHORT-BOWEL SYNDROME
     Dosage: 6 MILLIGRAM, TID
     Route: 048
     Dates: start: 20120101
  5. TEDUGLUTIDE [Suspect]
     Active Substance: TEDUGLUTIDE
     Dosage: 0.0500 MILLIGRAM/KILOGRAM (TOTAL DAILY DOSE 2.800 MG), 7 DOSES/WEEK
     Route: 065
     Dates: start: 20150609
  6. TEDUGLUTIDE [Suspect]
     Active Substance: TEDUGLUTIDE
     Dosage: 0.0500 MILLIGRAM/KILOGRAM (TOTAL DAILY DOSE 2.800 MG), 7 DOSES/WEEK
     Route: 065
     Dates: start: 20150609
  7. FRAGMIN [Concomitant]
     Active Substance: DALTEPARIN SODIUM
     Indication: PRODUCT USED FOR UNKNOWN INDICATION
     Route: 065
  8. COLECALCIFEROL [Concomitant]
     Active Substance: CHOLECALCIFEROL
     Indication: SHORT-BOWEL SYNDROME
     Dosage: 10000 INTERNATIONAL UNIT, Q3MONTHS
     Route: 030
     Dates: start: 20160426
  9. TEDUGLUTIDE [Suspect]
     Active Substance: TEDUGLUTIDE
     Indication: SHORT-BOWEL SYNDROME
     Dosage: UNK
     Route: 058
     Dates: start: 20150608
  10. TEDUGLUTIDE [Suspect]
     Active Substance: TEDUGLUTIDE
     Dosage: 0.0500 MILLIGRAM/KILOGRAM (TOTAL DAILY DOSE 2.800 MG), 7 DOSES/WEEK
     Route: 065
     Dates: start: 20150609
  11. TEDUGLUTIDE [Suspect]
     Active Substance: TEDUGLUTIDE
     Indication: SHORT-BOWEL SYNDROME
     Dosage: UNK
     Route: 058
     Dates: start: 20150608
  12. MAGNESIUM SULFATE. [Concomitant]
     Active Substance: MAGNESIUM SULFATE
     Indication: HYPOMAGNESAEMIA
     Dosage: 2 AMPS, 1/WEEK
     Route: 042
     Dates: start: 20170824
  13. NEXIUM [Concomitant]
     Active Substance: ESOMEPRAZOLE MAGNESIUM
     Indication: SHORT-BOWEL SYNDROME
     Dosage: 40 MILLIGRAM, QD
     Route: 048
     Dates: start: 20110101, end: 20180214

REACTIONS (1)
  - Stomal hernia [Recovered/Resolved]

NARRATIVE: CASE EVENT DATE: 20170101
